FAERS Safety Report 23978335 (Version 1)
Quarter: 2024Q2

REPORT INFORMATION
  Report Type: Spontaneous
  Country: US (occurrence: US)
  Receive Date: 20240614
  Receipt Date: 20240614
  Transmission Date: 20240716
  Serious: Yes (Other)
  Sender: FDA-Public Use
  Company Number: US-SUNBUM-2024-US-030955

PATIENT
  Age: 73 Year
  Sex: Female
  Weight: 90.72 kg

DRUGS (1)
  1. SUN BUM KIDS FACE SPF 50 [Suspect]
     Active Substance: AVOBENZONE\HOMOSALATE\OCTISALATE\OCTOCRYLENE
     Indication: Prophylaxis against solar radiation
     Dosage: ONE APPLICATION
     Route: 061
     Dates: start: 20240525, end: 20240525

REACTIONS (10)
  - Chemical burn [Unknown]
  - Chemical burns of eye [Unknown]
  - Application site erythema [Recovering/Resolving]
  - Application site swelling [Recovering/Resolving]
  - Application site vesicles [Recovering/Resolving]
  - Application site irritation [Recovering/Resolving]
  - Lacrimation increased [Recovering/Resolving]
  - Application site pain [Recovering/Resolving]
  - Eye irritation [Recovering/Resolving]
  - Vision blurred [Recovering/Resolving]

NARRATIVE: CASE EVENT DATE: 20240525
